FAERS Safety Report 7585006-6 (Version None)
Quarter: 2011Q2

REPORT INFORMATION
  Report Type: 
  Country: None (occurrence: None)
  Receive Date: 20110630
  Receipt Date: 20110620
  Transmission Date: 20111010
  Serious: Yes (Hospitalization)
  Sender: FDA-Public Use
  Company Number: FR-GILEAD-2010-0029424

PATIENT
  Sex: Male

DRUGS (10)
  1. IRBESARTAN [Suspect]
     Route: 048
     Dates: start: 20040101, end: 20100501
  2. METHOTREXATE SODIUM [Suspect]
     Dates: start: 20090928, end: 20100419
  3. TRAMADOL HCL [Suspect]
     Route: 048
     Dates: start: 20100407, end: 20100428
  4. ATRIPLA [Suspect]
     Indication: HIV INFECTION
     Route: 048
     Dates: start: 20090701, end: 20100501
  5. METHOTREXATE SODIUM [Suspect]
     Dates: start: 20100407, end: 20100419
  6. ACETAMINOPHEN [Suspect]
     Route: 048
     Dates: start: 20100301, end: 20100428
  7. TRAMADOL HCL [Suspect]
     Route: 048
     Dates: start: 20100301, end: 20100428
  8. ENBREL [Suspect]
     Indication: PSORIATIC ARTHROPATHY
     Route: 058
     Dates: start: 20091101, end: 20100429
  9. STABLON [Suspect]
     Route: 048
     Dates: start: 20090101, end: 20100502
  10. NEURONTIN [Suspect]
     Route: 048
     Dates: end: 20100503

REACTIONS (4)
  - BACTERAEMIA [None]
  - PANCYTOPENIA [None]
  - PNEUMONIA [None]
  - MUSCULOSKELETAL CHEST PAIN [None]
